FAERS Safety Report 8460588-0 (Version None)
Quarter: 2012Q2

REPORT INFORMATION
  Report Type: 
  Country: None (occurrence: None)
  Receive Date: 20120622
  Receipt Date: 20120427
  Transmission Date: 20120825
  Serious: No
  Sender: FDA-Public Use
  Company Number: US-ASTRAZENECA-2012SE27797

PATIENT
  Sex: Female

DRUGS (1)
  1. BRILINTA [Suspect]
     Route: 048

REACTIONS (1)
  - DRUG HYPERSENSITIVITY [None]
